FAERS Safety Report 18918848 (Version 13)
Quarter: 2025Q4

REPORT INFORMATION
  Report Type: Report from Study
  Country: CA (occurrence: CA)
  Receive Date: 20210220
  Receipt Date: 20251230
  Transmission Date: 20260117
  Serious: Yes (Other)
  Sender: TAKEDA
  Company Number: CA-TAKEDA-2020TUS060054

PATIENT
  Age: 49 Year
  Sex: Male

DRUGS (14)
  1. VEDOLIZUMAB [Suspect]
     Active Substance: VEDOLIZUMAB
     Indication: Crohn^s disease
     Dosage: 300 MILLIGRAM
  2. VEDOLIZUMAB [Suspect]
     Active Substance: VEDOLIZUMAB
     Dosage: 300 MILLIGRAM
  3. VEDOLIZUMAB [Suspect]
     Active Substance: VEDOLIZUMAB
     Dosage: 300 MILLIGRAM
  4. VEDOLIZUMAB [Suspect]
     Active Substance: VEDOLIZUMAB
     Dosage: 300 MILLIGRAM
  5. VEDOLIZUMAB [Suspect]
     Active Substance: VEDOLIZUMAB
     Dosage: 300 MILLIGRAM
  6. VEDOLIZUMAB [Suspect]
     Active Substance: VEDOLIZUMAB
     Dosage: 300 MILLIGRAM
  7. VEDOLIZUMAB [Suspect]
     Active Substance: VEDOLIZUMAB
     Dosage: 300 MILLIGRAM
  8. VEDOLIZUMAB [Suspect]
     Active Substance: VEDOLIZUMAB
     Dosage: 300 MILLIGRAM
  9. VEDOLIZUMAB [Suspect]
     Active Substance: VEDOLIZUMAB
     Dosage: 300 MILLIGRAM
  10. VEDOLIZUMAB [Suspect]
     Active Substance: VEDOLIZUMAB
     Dosage: 300 MILLIGRAM
  11. VEDOLIZUMAB [Suspect]
     Active Substance: VEDOLIZUMAB
     Dosage: 300 MILLIGRAM
  12. PURINETHOL [Concomitant]
     Active Substance: MERCAPTOPURINE
     Dosage: UNK
  13. PURINETHOL [Concomitant]
     Active Substance: MERCAPTOPURINE
     Dosage: 50 MILLIGRAM, QD
  14. PREDNISONE [Concomitant]
     Active Substance: PREDNISONE
     Dosage: UNK

REACTIONS (28)
  - Crohn^s disease [Unknown]
  - Haematochezia [Unknown]
  - Disturbance in attention [Unknown]
  - Amnesia [Unknown]
  - Balance disorder [Unknown]
  - Dizziness [Unknown]
  - Diarrhoea [Not Recovered/Not Resolved]
  - Depressed mood [Unknown]
  - Injection site pain [Unknown]
  - Impaired healing [Unknown]
  - Anger [Unknown]
  - Weight decreased [Unknown]
  - Stress [Unknown]
  - Substance use [Unknown]
  - Hiatus hernia [Unknown]
  - Drug ineffective [Not Recovered/Not Resolved]
  - Mucous stools [Unknown]
  - Agitation [Unknown]
  - Fall [Unknown]
  - Patient dissatisfaction with treatment [Unknown]
  - Frustration tolerance decreased [Not Recovered/Not Resolved]
  - Malaise [Unknown]
  - Abdominal pain [Not Recovered/Not Resolved]
  - Decreased appetite [Unknown]
  - Erythema [Unknown]
  - Pruritus [Unknown]
  - Fatigue [Unknown]
  - Oesophageal pain [Not Recovered/Not Resolved]
